FAERS Safety Report 4489092-1 (Version None)
Quarter: 2004Q4

REPORT INFORMATION
  Report Type: 
  Country: None (occurrence: None)
  Receive Date: 20041029
  Receipt Date: 20041021
  Transmission Date: 20050328
  Serious: Yes (Hospitalization)
  Sender: FDA-Public Use
  Company Number: FR-ROCHE-383984

PATIENT
  Age: 54 Year
  Sex: Female
  Weight: 80 kg

DRUGS (5)
  1. ROCEPHIN [Suspect]
     Indication: DRUG USE FOR UNKNOWN INDICATION
     Route: 030
     Dates: start: 20040809, end: 20040820
  2. OFLOCET [Concomitant]
  3. VANCOMYCIN [Concomitant]
  4. ORBENIN CAP [Concomitant]
  5. GENTAMICIN [Concomitant]

REACTIONS (6)
  - ALANINE AMINOTRANSFERASE INCREASED [None]
  - EOSINOPHILIA [None]
  - HEPATITIS CHOLESTATIC [None]
  - PRURITUS [None]
  - PYREXIA [None]
  - RASH MORBILLIFORM [None]
